FAERS Safety Report 22119644 (Version 8)
Quarter: 2023Q2

REPORT INFORMATION
  Report Type: Report from Study
  Country: BR (occurrence: BR)
  Receive Date: 20230321
  Receipt Date: 20230623
  Transmission Date: 20230721
  Serious: Yes (Death, Hospitalization, Other)
  Sender: FDA-Public Use
  Company Number: BR-002147023-NVSC2023BR060875

PATIENT
  Age: 57 Year
  Sex: Female
  Weight: 60 kg

DRUGS (10)
  1. KISQALI [Suspect]
     Active Substance: RIBOCICLIB
     Indication: Breast cancer
     Dosage: UNK
     Route: 065
  2. KISQALI [Suspect]
     Active Substance: RIBOCICLIB
     Indication: Metastases to central nervous system
     Dosage: 600 MG, QD 1ST CYCLE (UNINTERRUPTED CYCLE OF TWENTY-ONE DAYS, AND ONE INTERRUPTION OF SEVEN CONSECUT
     Route: 065
     Dates: start: 20230101
  3. KISQALI [Suspect]
     Active Substance: RIBOCICLIB
     Indication: Metastases to bone
     Dosage: 600 MG, QD
     Route: 065
     Dates: start: 20230102, end: 20230122
  4. KISQALI [Suspect]
     Active Substance: RIBOCICLIB
     Dosage: 600 MG, QD 2ND CYCLE (UNINTERRUPTED CYCLE OF TWENTY-ONE DAYS, AND ONE INTERRUPTION OF SEVEN CONSECUT
     Route: 065
     Dates: start: 20230130
  5. KISQALI [Suspect]
     Active Substance: RIBOCICLIB
     Dosage: 400 MG, QD
     Route: 065
     Dates: start: 20230216, end: 20230219
  6. KISQALI [Suspect]
     Active Substance: RIBOCICLIB
     Dosage: 600 MG, QD 3RD CYCLE (UNINTERRUPTED CYCLE OF TWENTY-ONE DAYS, AND ONE INTERRUPTION OF SEVEN CONSECUT
     Route: 065
     Dates: start: 20230227, end: 20230319
  7. KISQALI [Suspect]
     Active Substance: RIBOCICLIB
     Dosage: UNK
     Route: 065
  8. KISQALI [Suspect]
     Active Substance: RIBOCICLIB
     Dosage: UNK (MANUFACTURING DATE: JUN 2022)
     Route: 048
  9. DEXAMETHASONE [Suspect]
     Active Substance: DEXAMETHASONE
     Indication: Product used for unknown indication
     Dosage: UNK
     Route: 065
  10. GABAPENTIN [Concomitant]
     Active Substance: GABAPENTIN
     Indication: Seizure
     Dosage: 400 MG, QD
     Route: 048
     Dates: start: 202301

REACTIONS (28)
  - Illness [Fatal]
  - Asthenia [Not Recovered/Not Resolved]
  - Monoplegia [Unknown]
  - Vomiting [Recovered/Resolved]
  - Urinary retention [Not Recovered/Not Resolved]
  - Sensory loss [Not Recovered/Not Resolved]
  - Urinary incontinence [Unknown]
  - Back pain [Not Recovered/Not Resolved]
  - Pain [Not Recovered/Not Resolved]
  - Decreased immune responsiveness [Recovered/Resolved]
  - Movement disorder [Not Recovered/Not Resolved]
  - Neutrophilia [Recovered/Resolved]
  - Hypoglycaemia [Recovered/Resolved]
  - Urinary tract infection [Recovered/Resolved]
  - Anaemia [Recovered/Resolved]
  - Dysuria [Not Recovered/Not Resolved]
  - Mobility decreased [Not Recovered/Not Resolved]
  - Muscular weakness [Not Recovered/Not Resolved]
  - Hepatic pain [Not Recovered/Not Resolved]
  - Gastrointestinal motility disorder [Not Recovered/Not Resolved]
  - Anal incontinence [Unknown]
  - Ocular icterus [Not Recovered/Not Resolved]
  - Aphonia [Unknown]
  - Gastrooesophageal reflux disease [Recovered/Resolved]
  - Hypersensitivity [Unknown]
  - Cystitis [Not Recovered/Not Resolved]
  - Abdominal pain [Not Recovered/Not Resolved]
  - Constipation [Unknown]

NARRATIVE: CASE EVENT DATE: 20221225
